FAERS Safety Report 5978587-7 (Version None)
Quarter: 2008Q4

REPORT INFORMATION
  Report Type: 
  Country: None (occurrence: None)
  Receive Date: 20081204
  Receipt Date: 20081201
  Transmission Date: 20090506
  Serious: Yes (Other)
  Sender: FDA-Public Use
  Company Number: B0543389A

PATIENT
  Age: 38 Year
  Sex: Male

DRUGS (3)
  1. SERETIDE [Suspect]
     Indication: ASTHMA
     Dosage: 250MCG TWICE PER DAY
     Route: 055
     Dates: start: 20081006, end: 20081021
  2. ONON [Concomitant]
     Dosage: 450MG PER DAY
     Route: 048
  3. THEO SLOW [Concomitant]
     Dosage: 800MG PER DAY
     Route: 048

REACTIONS (2)
  - CHILLS [None]
  - PNEUMONIA [None]
